FAERS Safety Report 6554486-7 (Version None)
Quarter: 2010Q1

REPORT INFORMATION
  Report Type: 
  Country: None (occurrence: None)
  Receive Date: 20100122
  Receipt Date: 20100108
  Transmission Date: 20100710
  Serious: Yes (Death)
  Sender: FDA-Public Use
  Company Number: A-NJ2010-33168

PATIENT
  Age: 76 Year
  Sex: Female

DRUGS (2)
  1. TRACLEER [Suspect]
     Indication: PULMONARY HYPERTENSION
     Dosage: BID, ORAL
     Route: 048
     Dates: start: 20050601, end: 20091227
  2. COUMADIN [Concomitant]

REACTIONS (2)
  - PULMONARY FIBROSIS [None]
  - RENAL FAILURE [None]
